APPROVED DRUG PRODUCT: SPIRONOLACTONE AND HYDROCHLOROTHIAZIDE
Active Ingredient: HYDROCHLOROTHIAZIDE; SPIRONOLACTONE
Strength: 25MG;25MG
Dosage Form/Route: TABLET;ORAL
Application: A088025 | Product #001
Applicant: ASCOT HOSP PHARMACEUTICALS INC DIV TRAVENOL LABORATORIES INC
Approved: Nov 23, 1984 | RLD: No | RS: No | Type: DISCN